FAERS Safety Report 22323842 (Version 1)
Quarter: 2023Q2

REPORT INFORMATION
  Report Type: Spontaneous
  Country: US (occurrence: None)
  Receive Date: 20230512
  Receipt Date: 20230512
  Transmission Date: 20230721
  Serious: Yes (Other)
  Sender: FDA-Public Use
  Company Number: None

PATIENT
  Age: 27 Year
  Sex: Female
  Weight: 54.9 kg

DRUGS (5)
  1. MOTEGRITY [Suspect]
     Active Substance: PRUCALOPRIDE SUCCINATE
     Indication: Constipation
     Dosage: OTHER QUANTITY : 1 TABLET(S);?FREQUENCY : DAILY;?
     Route: 048
     Dates: start: 20220829, end: 20230511
  2. Estarylla- contraceptive pill Motegrity [Concomitant]
  3. MAGNESIUM [Concomitant]
     Active Substance: MAGNESIUM
  4. apple cider vinegar gummies [Concomitant]
  5. vitamin c gummies [Concomitant]

REACTIONS (12)
  - Exaggerated startle response [None]
  - Anxiety [None]
  - Anxiety [None]
  - Panic attack [None]
  - Hyperreflexia [None]
  - Derealisation [None]
  - Restlessness [None]
  - Disturbance in attention [None]
  - Thinking abnormal [None]
  - Dizziness [None]
  - Anger [None]
  - Suicidal ideation [None]

NARRATIVE: CASE EVENT DATE: 20230511
